FAERS Safety Report 21070137 (Version 3)
Quarter: 2024Q4

REPORT INFORMATION
  Report Type: Report from Study
  Country: CA (occurrence: CA)
  Receive Date: 20220712
  Receipt Date: 20241129
  Transmission Date: 20250114
  Serious: Yes (Other)
  Sender: NOVARTIS
  Company Number: CA-NOVARTISPH-NVSC2022CA113120

PATIENT
  Age: 49 Year
  Sex: Male

DRUGS (8)
  1. COSENTYX [Suspect]
     Active Substance: SECUKINUMAB
     Indication: Psoriasis
     Dosage: 300 MG, QW (WEEKS 0, 1, 2, AND 3)
     Route: 058
     Dates: start: 20220628
  2. COSENTYX [Suspect]
     Active Substance: SECUKINUMAB
     Dosage: 300 MG, QMO
     Route: 058
  3. COSENTYX [Suspect]
     Active Substance: SECUKINUMAB
     Dosage: 300 MG, QW (SOLUTION FOR INJECTION) (WEEKLY FOR X5)
     Route: 058
  4. COSENTYX [Suspect]
     Active Substance: SECUKINUMAB
     Dosage: 300 MG, QW (SOLUTION FOR INJECTION) (WEEKLY FOR X5)
     Route: 058
     Dates: start: 20240708
  5. CYCLOSPORINE [Suspect]
     Active Substance: CYCLOSPORINE
     Indication: Product used for unknown indication
     Dosage: UNK
     Route: 048
  6. METHOTREXATE [Concomitant]
     Active Substance: METHOTREXATE
     Indication: Product used for unknown indication
     Dosage: UNK
     Route: 048
  7. STELARA [Concomitant]
     Active Substance: USTEKINUMAB
     Indication: Product used for unknown indication
     Dosage: UNK
     Route: 058
  8. RISANKIZUMAB [Concomitant]
     Active Substance: RISANKIZUMAB
     Indication: Product used for unknown indication
     Dosage: UNK
     Route: 065

REACTIONS (10)
  - Seizure [Unknown]
  - Dementia [Unknown]
  - Off label use [Not Recovered/Not Resolved]
  - Memory impairment [Unknown]
  - Ill-defined disorder [Unknown]
  - Psoriasis [Unknown]
  - Pruritus [Unknown]
  - Skin laceration [Unknown]
  - Visual impairment [Not Recovered/Not Resolved]
  - Drug ineffective [Unknown]
